FAERS Safety Report 14314600 (Version 2)
Quarter: 2018Q1

REPORT INFORMATION
  Report Type: Spontaneous
  Country: US (occurrence: US)
  Receive Date: 20171221
  Receipt Date: 20180207
  Transmission Date: 20180509
  Serious: Yes (Death, Hospitalization)
  Sender: FDA-Public Use
  Company Number: US-VIFOR (INTERNATIONAL) INC.-VIT-2017-13915

PATIENT
  Sex: Male
  Weight: 59.02 kg

DRUGS (6)
  1. METOPROLOL TARTRATE. [Concomitant]
     Active Substance: METOPROLOL TARTRATE
  2. VELTASSA [Suspect]
     Active Substance: PATIROMER
     Indication: HYPERKALAEMIA
     Route: 048
     Dates: start: 20160503
  3. OMEPRAZOLE. [Concomitant]
     Active Substance: OMEPRAZOLE
  4. CLOPIDOGREL BISULFATE. [Concomitant]
     Active Substance: CLOPIDOGREL BISULFATE
  5. VALSARTAN. [Concomitant]
     Active Substance: VALSARTAN
  6. SALBUTAMOL SULFATE [Concomitant]
     Active Substance: ALBUTEROL SULFATE

REACTIONS (12)
  - Respiratory failure [Fatal]
  - Gangrene [Unknown]
  - Weight decreased [Unknown]
  - Productive cough [Recovering/Resolving]
  - Renal failure [Unknown]
  - Chronic obstructive pulmonary disease [Fatal]
  - Gastrointestinal necrosis [Unknown]
  - Atrial fibrillation [Fatal]
  - Malaise [Unknown]
  - Hernia [Recovering/Resolving]
  - General physical health deterioration [Unknown]
  - Abdominal infection [Unknown]

NARRATIVE: CASE EVENT DATE: 2017
